FAERS Safety Report 7260877-1 (Version None)
Quarter: 2011Q1

REPORT INFORMATION
  Report Type: 
  Country: None (occurrence: None)
  Receive Date: 20110130
  Receipt Date: 20101227
  Transmission Date: 20110831
  Serious: No
  Sender: FDA-Public Use
  Company Number: US-ABBOTT-10P-163-0693733-00

PATIENT
  Age: 26 Year
  Sex: Female

DRUGS (14)
  1. AVIANE-28 [Concomitant]
     Indication: CONTRACEPTION
     Dosage: PILLS
  2. OMEPRAZOLE [Concomitant]
     Indication: IMPAIRED GASTRIC EMPTYING
  3. TORADOL [Concomitant]
     Indication: MIGRAINE
     Dosage: SELDOM USED
  4. SYNTHROID [Concomitant]
     Indication: HYPOTHYROIDISM
  5. LEXAPRO [Concomitant]
     Indication: PAIN
  6. NEURONTIN [Concomitant]
     Indication: PAIN
  7. TRAMADOL HCL [Concomitant]
     Indication: PAIN
     Dosage: TWICE A DAY AT MOST
  8. DOMPERIDONE [Concomitant]
     Indication: IMPAIRED GASTRIC EMPTYING
  9. HUMIRA [Suspect]
     Indication: CROHN'S DISEASE
     Dates: start: 20100901
  10. FLEXERIL [Concomitant]
     Indication: PAIN
  11. ERYTHROMYCIN [Concomitant]
     Indication: IMPAIRED GASTRIC EMPTYING
  12. CORGARD [Concomitant]
     Indication: BLOOD PRESSURE
  13. ZOFRAN [Concomitant]
     Indication: NAUSEA
  14. FENTANYL [Concomitant]
     Indication: PAIN
     Dosage: PATCH

REACTIONS (2)
  - ABDOMINAL PAIN LOWER [None]
  - PYREXIA [None]
